FAERS Safety Report 7978325-2 (Version None)
Quarter: 2011Q4

REPORT INFORMATION
  Report Type: 
  Country: None (occurrence: None)
  Receive Date: 20111214
  Receipt Date: 20111201
  Transmission Date: 20120403
  Serious: Yes (Hospitalization)
  Sender: FDA-Public Use
  Company Number: FR-RANBAXY-2011RR-41664

PATIENT
  Age: 34 Year
  Sex: Male
  Weight: 62 kg

DRUGS (19)
  1. NICORANDIL [Concomitant]
     Indication: CORONARY ARTERY DISEASE
     Dosage: 10 MG/DAY
     Route: 065
  2. COTRIM [Concomitant]
     Indication: PRODUCT USED FOR UNKNOWN INDICATION
     Dosage: 400 MG/80 MG 3 TABLETS PER WEEK
     Route: 048
  3. CHOLECALCIFEROL [Concomitant]
     Indication: PRODUCT USED FOR UNKNOWN INDICATION
     Dosage: 880 IU/DAY
     Route: 065
  4. COLIMYCIN [Concomitant]
     Indication: BRONCHIOLITIS
     Dosage: 2 SPRAYERS PER DAY
     Route: 065
  5. ALPHA-TOCOFEROL [Concomitant]
     Indication: PRODUCT USED FOR UNKNOWN INDICATION
     Dosage: 500 MG/DAY
     Route: 065
  6. CYCLOSPORINE [Suspect]
     Indication: PROPHYLAXIS AGAINST TRANSPLANT REJECTION
     Dosage: 170 MG, BID
     Route: 065
  7. COLCHICINE [Suspect]
     Dosage: 1 MG, QD
     Route: 065
     Dates: start: 20091001, end: 20091028
  8. PANCREATIN TRIPLE STRENGTH CAP [Concomitant]
     Indication: PRODUCT USED FOR UNKNOWN INDICATION
     Dosage: 250000 IU/DAY
     Route: 065
  9. FERROUS ASCORBATE [Concomitant]
     Indication: PRODUCT USED FOR UNKNOWN INDICATION
     Dosage: 66 MG/DAY
     Route: 065
  10. IRBESARTAN [Concomitant]
     Indication: CORONARY ARTERY DISEASE
     Dosage: 150 MG/DAY
     Route: 065
  11. CALCIUM [Concomitant]
     Indication: PRODUCT USED FOR UNKNOWN INDICATION
     Dosage: 1 G/DAY
     Route: 065
  12. AZITHROMYCIN [Interacting]
     Indication: BRONCHIOLITIS
     Dosage: 250 MG/DAY
     Route: 065
  13. COLCHICINE [Suspect]
     Indication: GOUT
     Dosage: 1 MG, TID
     Route: 065
     Dates: start: 20091020
  14. COLCHICINE [Suspect]
     Dosage: 1 MG, BID
     Route: 065
     Dates: start: 20091001, end: 20091001
  15. HYDROCORTISONE [Suspect]
     Indication: PROPHYLAXIS AGAINST TRANSPLANT REJECTION
     Dosage: 20 MG/DAY
     Route: 065
  16. PRAVASTATIN [Interacting]
     Indication: CORONARY ARTERY DISEASE
     Dosage: 20 MG/DAY
     Route: 065
  17. AFINITOR [Suspect]
     Indication: PROPHYLAXIS AGAINST TRANSPLANT REJECTION
     Dosage: 1 MG/DAY
     Route: 065
  18. LYSINE ACETYLSALICYLATE [Concomitant]
     Indication: CORONARY ARTERY DISEASE
     Dosage: 75 MG/DAY
     Route: 065
  19. ESOMEPRAZOLE MAGNESIUM [Concomitant]
     Indication: PRODUCT USED FOR UNKNOWN INDICATION
     Dosage: 20 MG, UNK
     Route: 065

REACTIONS (3)
  - DRUG INTERACTION [None]
  - RHABDOMYOLYSIS [None]
  - MULTI-ORGAN FAILURE [None]
